FAERS Safety Report 7823987-3 (Version None)
Quarter: 2011Q4

REPORT INFORMATION
  Report Type: 
  Country: None (occurrence: None)
  Receive Date: 20111018
  Receipt Date: 20111018
  Transmission Date: 20120403
  Serious: Yes (Hospitalization)
  Sender: FDA-Public Use
  Company Number: None

PATIENT
  Age: 58 Year
  Sex: Male
  Weight: 87 kg

DRUGS (2)
  1. PREGABALIN [Suspect]
     Indication: CONVULSION
     Dosage: 300 MG BID PO
     Route: 048
     Dates: start: 20101006, end: 20110708
  2. FINASTERIDE [Suspect]
     Dosage: EVERY DAY PO
     Route: 048
     Dates: start: 20110604

REACTIONS (5)
  - DIZZINESS [None]
  - HYPOTENSION [None]
  - MYALGIA [None]
  - URTICARIA [None]
  - PRURITUS [None]
